FAERS Safety Report 10523852 (Version 1)
Quarter: 2014Q4

REPORT INFORMATION
  Report Type: Spontaneous
  Country: US (occurrence: None)
  Receive Date: 20141015
  Receipt Date: 20141015
  Transmission Date: 20150528
  Serious: No
  Sender: FDA-Public Use
  Company Number: None

PATIENT
  Age: 61 Year
  Sex: Female
  Weight: 59.88 kg

DRUGS (1)
  1. VENLAFAXINE HCL [Suspect]
     Active Substance: VENLAFAXINE HYDROCHLORIDE
     Indication: ANXIETY
     Dosage: 37.5 MG 1 PILL 1X DAILY BY MOUTH
     Route: 048
     Dates: start: 20140731, end: 20140731

REACTIONS (6)
  - Mania [None]
  - Palpitations [None]
  - Depression [None]
  - Suicidal ideation [None]
  - Psychomotor hyperactivity [None]
  - Anxiety [None]

NARRATIVE: CASE EVENT DATE: 20140731
